FAERS Safety Report 20507399 (Version 7)
Quarter: 2022Q4

REPORT INFORMATION
  Report Type: Report from Study
  Country: MX (occurrence: MX)
  Receive Date: 20220223
  Receipt Date: 20221018
  Transmission Date: 20230113
  Serious: Yes (Hospitalization, Other)
  Sender: FDA-Public Use
  Company Number: MX-NOVARTISPH-NVSC2022MX005624

PATIENT
  Age: 76 Year
  Sex: Female
  Weight: 66 kg

DRUGS (5)
  1. ENTRESTO [Suspect]
     Active Substance: SACUBITRIL\VALSARTAN
     Indication: Hypertension
     Dosage: 1 DOSAGE FORM, BID (50 MG)
     Route: 048
     Dates: start: 202101
  2. ENTRESTO [Suspect]
     Active Substance: SACUBITRIL\VALSARTAN
     Indication: Cardiac disorder
     Dosage: UNK
     Route: 065
  3. ENTRESTO [Suspect]
     Active Substance: SACUBITRIL\VALSARTAN
     Indication: Blood pressure increased
     Dosage: 1 DOSAGE FORM (50 MG)
     Route: 065
  4. ENTRESTO [Suspect]
     Active Substance: SACUBITRIL\VALSARTAN
     Dosage: 0.5 DOSAGE FORM BID (100 MG)
     Route: 048
  5. ENTRESTO [Suspect]
     Active Substance: SACUBITRIL\VALSARTAN
     Dosage: 1 DOSAGE FORM (50 MG)
     Route: 048

REACTIONS (45)
  - Infarction [Recovered/Resolved]
  - Upper limb fracture [Unknown]
  - Cataract [Not Recovered/Not Resolved]
  - Gastric infection [Recovered/Resolved]
  - Pain in extremity [Not Recovered/Not Resolved]
  - Influenza [Recovering/Resolving]
  - Back pain [Unknown]
  - Rhinorrhoea [Unknown]
  - Nasal congestion [Unknown]
  - Joint swelling [Unknown]
  - Erythema [Unknown]
  - Arthralgia [Unknown]
  - Urinary tract infection [Recovered/Resolved]
  - Anaemia [Recovering/Resolving]
  - Insomnia [Unknown]
  - Phlebitis [Unknown]
  - Cardiovascular disorder [Unknown]
  - Feeling abnormal [Not Recovered/Not Resolved]
  - Somnolence [Not Recovered/Not Resolved]
  - Osteoporosis [Not Recovered/Not Resolved]
  - Vision blurred [Unknown]
  - Malaise [Unknown]
  - Constipation [Not Recovered/Not Resolved]
  - Abdominal pain upper [Unknown]
  - Inflammation [Unknown]
  - Dehydration [Unknown]
  - Faeces discoloured [Not Recovered/Not Resolved]
  - Dysgeusia [Not Recovered/Not Resolved]
  - Tremor [Recovering/Resolving]
  - Nasopharyngitis [Unknown]
  - Fall [Unknown]
  - Pain [Unknown]
  - Burning sensation [Not Recovered/Not Resolved]
  - Hyperhidrosis [Unknown]
  - Blood glucose increased [Recovered/Resolved]
  - Blood glucose decreased [Unknown]
  - Vein disorder [Unknown]
  - Cough [Unknown]
  - Diarrhoea [Unknown]
  - Abdominal discomfort [Recovering/Resolving]
  - Nausea [Not Recovered/Not Resolved]
  - Hypotension [Recovering/Resolving]
  - Hypotension [Recovered/Resolved]
  - Wrong technique in product usage process [Unknown]
  - Product use in unapproved indication [Unknown]

NARRATIVE: CASE EVENT DATE: 20210101
